FAERS Safety Report 13197459 (Version 3)
Quarter: 2017Q1

REPORT INFORMATION
  Report Type: Report from Study
  Country: CA (occurrence: CA)
  Receive Date: 20170208
  Receipt Date: 20170313
  Transmission Date: 20170428
  Serious: Yes (Hospitalization)
  Sender: FDA-Public Use
  Company Number: CA-JNJFOC-20170204566

PATIENT
  Age: 32 Year
  Sex: Male
  Weight: 84 kg

DRUGS (2)
  1. REMICADE [Suspect]
     Active Substance: INFLIXIMAB
     Indication: COLITIS ULCERATIVE
     Route: 042
     Dates: start: 20170131
  2. REMICADE [Suspect]
     Active Substance: INFLIXIMAB
     Indication: COLITIS ULCERATIVE
     Dosage: DRUG START DATE: + /- 7 YEARS
     Route: 042
     Dates: start: 2010

REACTIONS (8)
  - Wheezing [Recovering/Resolving]
  - Chills [Unknown]
  - Chest discomfort [Recovering/Resolving]
  - Blood pressure increased [Unknown]
  - Infusion related reaction [Unknown]
  - Cyanosis [Unknown]
  - Off label use [Unknown]
  - Product use issue [Unknown]

NARRATIVE: CASE EVENT DATE: 2010
